FAERS Safety Report 6251388-0 (Version None)
Quarter: 2009Q2

REPORT INFORMATION
  Report Type: 
  Country: None (occurrence: None)
  Receive Date: 20090630
  Receipt Date: 20090622
  Transmission Date: 20091009
  Serious: Yes (Hospitalization)
  Sender: FDA-Public Use
  Company Number: B0581227A

PATIENT
  Sex: Female

DRUGS (13)
  1. NABUCOX [Suspect]
     Indication: SCIATICA
     Route: 048
     Dates: start: 20090216
  2. VOLTAREN [Suspect]
     Indication: SCIATICA
     Route: 058
     Dates: start: 20090201
  3. KARDEGIC [Suspect]
     Indication: DRUG USE FOR UNKNOWN INDICATION
     Route: 048
  4. KENACORT [Suspect]
     Indication: SCIATICA
     Dosage: 1INJ SINGLE DOSE
     Route: 030
     Dates: start: 20090401
  5. BISOPROLOL [Concomitant]
  6. FENOFIBRATE [Concomitant]
  7. ADANCOR [Concomitant]
  8. AMLODIPINE [Concomitant]
  9. VASTAREL [Concomitant]
  10. DISCOTRINE [Concomitant]
  11. ISKEDYL [Concomitant]
  12. FOSAMAX [Concomitant]
  13. OMEPRAZOLE [Concomitant]

REACTIONS (3)
  - ANAEMIA [None]
  - MELAENA [None]
  - ULCER [None]
